FAERS Safety Report 14045803 (Version 4)
Quarter: 2018Q1

REPORT INFORMATION
  Report Type: Report from Study
  Country: JP (occurrence: JP)
  Receive Date: 20171005
  Receipt Date: 20180223
  Transmission Date: 20180508
  Serious: Yes (Hospitalization)
  Sender: FDA-Public Use
  Company Number: JP-PFIZER INC-2017413853

PATIENT
  Age: 69 Year
  Sex: Female
  Weight: 54 kg

DRUGS (12)
  1. AVELUMAB [Suspect]
     Active Substance: AVELUMAB
     Indication: RENAL CELL CARCINOMA
     Dosage: 572 MG (10 MG/KG), EVERY 2 WEEKS
     Route: 042
     Dates: start: 20170719, end: 20170802
  2. MICARDIS [Concomitant]
     Active Substance: TELMISARTAN
     Indication: HYPERTENSION
     Dosage: 1 DF, 1X/DAY(AFTER BREAKFAST)
     Route: 048
     Dates: start: 20170904
  3. MIYA-BM [Concomitant]
     Active Substance: CLOSTRIDIUM BUTYRICUM SPORES STRAIN M-55
     Indication: DIARRHOEA
     Dosage: 1 G, 1X/DAY (AFTER MEALS)
     Route: 048
     Dates: start: 20170922
  4. BAYASPIRIN [Concomitant]
     Active Substance: ASPIRIN
     Indication: CEREBRAL INFARCTION
     Dosage: 1 DF, 1X/DAY(AFTER BREAKFAST)
     Route: 048
     Dates: start: 20120412
  5. UREPEARL [Concomitant]
     Active Substance: UREA
     Indication: PALMAR-PLANTAR ERYTHRODYSAESTHESIA SYNDROME
     Dosage: SEVERAL TIMES, DAILY
     Route: 062
     Dates: start: 20170915
  6. TEMOCAPRIL HYDROCHLORIDE [Concomitant]
     Active Substance: TEMOCAPRIL HYDROCHLORIDE
     Indication: HYPERTENSION
     Dosage: 1 DF, 1X/DAY(AFTER BREAKFAST)
     Route: 048
     Dates: start: 20120412
  7. PREDNIN [Concomitant]
     Active Substance: PREDNISOLONE SODIUM PHOSPHATE
     Indication: DIARRHOEA
     Dosage: 1 DF, 1X/DAY(AFTER BREAKFAST)
     Route: 048
     Dates: start: 20170809
  8. AXITINIB [Suspect]
     Active Substance: AXITINIB
     Indication: RENAL CELL CARCINOMA
     Dosage: 5 MG, 2X/DAY
     Route: 048
     Dates: start: 20170719, end: 20170924
  9. NIZATIDINE. [Concomitant]
     Active Substance: NIZATIDINE
     Indication: GASTRITIS PROPHYLAXIS
     Dosage: 1 DF, 2X/DAY(AFTER BREAKFAST AND DINNER)
     Route: 048
     Dates: start: 20120412
  10. AMLODIPINE BESILATE [Concomitant]
     Active Substance: AMLODIPINE BESYLATE
     Indication: HYPERTENSION
     Dosage: 1 DF, 1X/DAY(AFTER BREAKFAST)
     Route: 048
     Dates: start: 20120412
  11. ATORVASTATIN CALCIUM. [Concomitant]
     Active Substance: ATORVASTATIN CALCIUM
     Indication: DYSLIPIDAEMIA
     Dosage: 1 DF, 1X/DAY
     Route: 048
     Dates: start: 20120412
  12. AZUNOL [Concomitant]
     Active Substance: SODIUM GUALENATE
     Indication: STOMATITIS
     Dosage: SEVERAL TIME, DAILY
     Route: 049
     Dates: start: 20170901

REACTIONS (1)
  - Arrhythmia [Recovered/Resolved]

NARRATIVE: CASE EVENT DATE: 20170922
